FAERS Safety Report 15681147 (Version 9)
Quarter: 2019Q1

REPORT INFORMATION
  Report Type: Report from Study
  Country: JP (occurrence: JP)
  Receive Date: 20181203
  Receipt Date: 20190307
  Transmission Date: 20190417
  Serious: Yes (Hospitalization)
  Sender: FDA-Public Use
  Company Number: JP-EISAI MEDICAL RESEARCH-EC-2018-048606

PATIENT
  Age: 67 Year
  Sex: Female
  Weight: 54 kg

DRUGS (19)
  1. LENVATINIB [Suspect]
     Active Substance: LENVATINIB
     Route: 048
     Dates: start: 20181205, end: 20181225
  2. LIVALO [Concomitant]
     Active Substance: PITAVASTATIN CALCIUM
  3. TAKECAB [Concomitant]
     Active Substance: VONOPRAZAN FUMURATE
  4. TSUMURA RIKKUNSHITO EXTRACT GRANULES FOR ETHICAL USE [Concomitant]
     Active Substance: HERBALS
  5. MIYA-BM [Concomitant]
     Active Substance: CLOSTRIDIUM BUTYRICUM SPORES STRAIN M-55
  6. LENVATINIB [Suspect]
     Active Substance: LENVATINIB
     Route: 048
     Dates: start: 20190104, end: 20190130
  7. LENVATINIB [Suspect]
     Active Substance: LENVATINIB
     Route: 048
     Dates: start: 20190202, end: 20190212
  8. HEPARINOID [Concomitant]
     Active Substance: CHONDROITIN SULFATE (BOVINE)
  9. E KEPPRA [Concomitant]
     Active Substance: LEVETIRACETAM
  10. SENNOSIDE [Concomitant]
     Active Substance: SENNOSIDES
  11. THYRADIN S [Concomitant]
     Active Substance: LEVOTHYROXINE SODIUM
  12. PEMBROLIZUMAB. [Suspect]
     Active Substance: PEMBROLIZUMAB
     Indication: RENAL CELL CARCINOMA
     Route: 041
     Dates: start: 20181029
  13. DEXALTIN [Concomitant]
     Active Substance: DEXAMETHASONE
  14. LENVATINIB [Suspect]
     Active Substance: LENVATINIB
     Indication: RENAL CELL CARCINOMA
     Route: 048
     Dates: start: 20181029, end: 20181126
  15. NEOSTELIN GREEN [Concomitant]
     Active Substance: BENZETHONIUM CHLORIDE
  16. HERBAL NOS [Concomitant]
     Active Substance: HERBALS
  17. AZILVA [Suspect]
     Active Substance: AZILSARTAN KAMEDOXOMIL
     Indication: HYPERTENSION
     Route: 048
     Dates: start: 20181213
  18. NEUROTROPIN [Concomitant]
     Active Substance: NEUROTROPIN
  19. MAGNESIUM OXIDE. [Concomitant]
     Active Substance: MAGNESIUM OXIDE

REACTIONS (3)
  - Diarrhoea [Recovered/Resolved]
  - Haemorrhage urinary tract [Recovered/Resolved]
  - Decreased appetite [Recovering/Resolving]

NARRATIVE: CASE EVENT DATE: 20181127
